FAERS Safety Report 7825631-8 (Version None)
Quarter: 2011Q4

REPORT INFORMATION
  Report Type: 
  Country: None (occurrence: None)
  Receive Date: 20111019
  Receipt Date: 20111006
  Transmission Date: 20120403
  Serious: Yes (Hospitalization)
  Sender: FDA-Public Use
  Company Number: CH-BAYER-2011-095218

PATIENT
  Age: 53 Year
  Sex: Male

DRUGS (8)
  1. ATORVASTATIN CALCIUM [Concomitant]
     Dosage: 80 MG, QD
     Route: 048
  2. METFORMIN HCL [Concomitant]
     Dosage: 100 MG, BID
     Route: 048
  3. ATENOLOL [Concomitant]
     Dosage: 50 MG, QD
     Route: 048
  4. PRASUGREL [Suspect]
     Dosage: 10 MG, QD
     Route: 048
     Dates: start: 20100101
  5. ENALAPRIL MALEATE [Concomitant]
     Dosage: 10 MG, BID
     Route: 048
  6. GLIMERID [Concomitant]
  7. AMLODIPINE [Concomitant]
     Dosage: 10 MG, QD
     Route: 048
  8. ASPIRIN [Suspect]
     Dosage: 100 MG, QD
     Route: 048
     Dates: start: 20100101

REACTIONS (3)
  - MELAENA [None]
  - ANAEMIA [None]
  - GASTROINTESTINAL HAEMORRHAGE [None]
